FAERS Safety Report 15771292 (Version 1)
Quarter: 2018Q4

REPORT INFORMATION
  Report Type: Spontaneous
  Country: US (occurrence: US)
  Receive Date: 20181228
  Receipt Date: 20181228
  Transmission Date: 20190205
  Serious: No
  Sender: FDA-Public Use
  Company Number: US-INDIVIOR LIMITED-INDV-114650-2018

PATIENT
  Sex: Male

DRUGS (2)
  1. SUBLOCADE [Suspect]
     Active Substance: BUPRENORPHINE
     Indication: PRODUCT USED FOR UNKNOWN INDICATION
     Dosage: 100MG, QMO (2 DOSES)
     Route: 065
     Dates: start: 20180918
  2. SUBLOCADE [Suspect]
     Active Substance: BUPRENORPHINE
     Indication: PRODUCT USED FOR UNKNOWN INDICATION
     Dosage: 300MG, QMO (2 DOSES)
     Route: 065
     Dates: start: 20180719, end: 20180816

REACTIONS (5)
  - Drug abuse [Unknown]
  - Drug withdrawal syndrome [Unknown]
  - Drug dependence [Unknown]
  - Drug level decreased [Unknown]
  - Alcoholism [Recovered/Resolved]

NARRATIVE: CASE EVENT DATE: 2018
